FAERS Safety Report 4795149-8 (Version None)
Quarter: 2005Q4

REPORT INFORMATION
  Report Type: 
  Country: None (occurrence: None)
  Receive Date: 20051006
  Receipt Date: 20051006
  Transmission Date: 20060501
  Serious: Yes (Life-Threatening, Hospitalization, Other)
  Sender: FDA-Public Use
  Company Number: None

PATIENT
  Age: 40 Year
  Sex: Female
  Weight: 81.6475 kg

DRUGS (4)
  1. NEURONTIN [Suspect]
     Dosage: 400 MG 3X DAY (DAILY LIKE DOCTOR SAID)
  2. TRILEPTAL [Suspect]
     Dosage: 150 MG 3X DAY
  3. PAXIL [Suspect]
     Dosage: 40 MG 2 X DAY
  4. ... [Concomitant]

REACTIONS (5)
  - AMNESIA [None]
  - BLOOD PRESSURE IMMEASURABLE [None]
  - CONVULSION [None]
  - LOSS OF CONSCIOUSNESS [None]
  - PAIN [None]
